FAERS Safety Report 5646247-8 (Version None)
Quarter: 2008Q1

REPORT INFORMATION
  Report Type: 
  Country: None (occurrence: None)
  Receive Date: 20080131
  Receipt Date: 20071207
  Transmission Date: 20080703
  Serious: No
  Sender: FDA-Public Use
  Company Number: 163-21880-07120538

PATIENT
  Age: 47 Year
  Sex: Male
  Weight: 88.4514 kg

DRUGS (10)
  1. REVLIMID [Suspect]
     Indication: MULTIPLE MYELOMA
     Dosage: 15 MG, SUNDAYS, TUESDAYS AND THURSDAYS, ORAL ; 10 MG, 3 TIMES WEEKLY, ORAL
     Route: 048
     Dates: start: 20070830, end: 20070101
  2. REVLIMID [Suspect]
     Indication: MULTIPLE MYELOMA
     Dosage: 15 MG, SUNDAYS, TUESDAYS AND THURSDAYS, ORAL ; 10 MG, 3 TIMES WEEKLY, ORAL
     Route: 048
     Dates: start: 20071115
  3. TUMS (CALCIUM CARBONATE) [Concomitant]
  4. METOPROLOL TARTRATE [Concomitant]
  5. LIPITOR [Concomitant]
  6. ASPIRIN [Concomitant]
  7. NIFEDIPINE [Concomitant]
  8. LASIX [Concomitant]
  9. DECADRON [Concomitant]
  10. CALCITRIOL [Concomitant]

REACTIONS (1)
  - DYSPHONIA [None]
